FAERS Safety Report 9425128 (Version 1)
Quarter: 2013Q3

REPORT INFORMATION
  Report Type: Spontaneous
  Country: US (occurrence: US)
  Receive Date: 20130729
  Receipt Date: 20130729
  Transmission Date: 20140515
  Serious: Yes (Hospitalization, Other)
  Sender: FDA-Public Use
  Company Number: US-PFIZER INC-2013217404

PATIENT
  Age: 67 Year
  Sex: Female
  Weight: 69 kg

DRUGS (2)
  1. LYRICA [Suspect]
     Indication: FIBROMYALGIA
     Dosage: 50 MG, 2X/DAY
     Route: 048
     Dates: start: 20130721, end: 20130722
  2. BETAPACE [Concomitant]
     Indication: CARDIAC DISORDER
     Dosage: UNK

REACTIONS (14)
  - Ill-defined disorder [Unknown]
  - Spinal disorder [Unknown]
  - Dysstasia [Unknown]
  - Impaired driving ability [Unknown]
  - Weight increased [Unknown]
  - Feeling abnormal [Unknown]
  - Pain [Unknown]
  - Limb discomfort [Unknown]
  - Dizziness [Unknown]
  - Disturbance in attention [Unknown]
  - Gait disturbance [Unknown]
  - Fear [Unknown]
  - Vision blurred [Recovered/Resolved]
  - Oedema peripheral [Unknown]
